FAERS Safety Report 15668319 (Version 1)
Quarter: 2018Q4

REPORT INFORMATION
  Report Type: Spontaneous
  Country: DE (occurrence: DE)
  Receive Date: 20181129
  Receipt Date: 20181129
  Transmission Date: 20190205
  Serious: Yes (Hospitalization, Other)
  Sender: FDA-Public Use
  Company Number: DE-TEVA-2018-DE-979489

PATIENT
  Age: 63 Year
  Sex: Male

DRUGS (2)
  1. TESTOSTERON DEPOT [Concomitant]
     Indication: ANDROGEN DEFICIENCY
     Dosage: EVERY 2 WEEKS
     Route: 065
  2. TERBINAFINE 250 MG TABLETTEN [Suspect]
     Active Substance: TERBINAFINE
     Indication: ONYCHOMYCOSIS
     Dosage: 3X/WEEK 1 TABLET (MON., WED. FRI.)
     Route: 048
     Dates: start: 20180611, end: 20180718

REACTIONS (1)
  - Hepatitis toxic [Recovered/Resolved]

NARRATIVE: CASE EVENT DATE: 20180718
